FAERS Safety Report 10091488 (Version 2)
Quarter: 2014Q2

REPORT INFORMATION
  Report Type: Spontaneous
  Country: US (occurrence: US)
  Receive Date: 20140421
  Receipt Date: 20140421
  Transmission Date: 20141212
  Serious: No
  Sender: FDA-Public Use
  Company Number: US-GILEAD-2012-0065267

PATIENT
  Age: 65 Year
  Sex: Female

DRUGS (15)
  1. LETAIRIS [Suspect]
     Indication: PRODUCT USED FOR UNKNOWN INDICATION
     Dosage: 10 MG, QD
     Route: 048
     Dates: start: 20121025
  2. SYNTHROID [Concomitant]
  3. GABAPENTIN [Concomitant]
  4. ASPIRIN [Concomitant]
  5. VICODIN [Concomitant]
  6. HYDROCHLOROTHIAZIDE [Concomitant]
  7. CILOSTAZOL [Concomitant]
  8. FLONASE [Concomitant]
  9. FLOVENT [Concomitant]
  10. DICLOFENAC [Concomitant]
  11. COLCHICINE [Concomitant]
  12. VERAPAMIL [Concomitant]
  13. CETIRIZINE [Concomitant]
  14. GEMFIBROZIL [Concomitant]
  15. AMITRIPTYLINE [Concomitant]

REACTIONS (1)
  - Oedema peripheral [Unknown]
